FAERS Safety Report 17682652 (Version 1)
Quarter: 2020Q2

REPORT INFORMATION
  Report Type: Spontaneous
  Country: US (occurrence: US)
  Receive Date: 20200419
  Receipt Date: 20200419
  Transmission Date: 20200714
  Serious: No
  Sender: FDA-Public Use
  Company Number: US-TEVA-2020-US-1224003

PATIENT
  Age: 34 Year
  Sex: Female

DRUGS (1)
  1. BUSPIRONE [Suspect]
     Active Substance: BUSPIRONE HYDROCHLORIDE
     Dosage: 10 MG
     Route: 048

REACTIONS (2)
  - Nausea [Unknown]
  - Diarrhoea [Unknown]
